FAERS Safety Report 8369419-0 (Version None)
Quarter: 2012Q2

REPORT INFORMATION
  Report Type: 
  Country: None (occurrence: None)
  Receive Date: 20120516
  Receipt Date: 20120516
  Transmission Date: 20120825
  Serious: Yes (Death, Life-Threatening, Other)
  Sender: FDA-Public Use
  Company Number: None

PATIENT
  Age: 24 Year
  Sex: Male
  Weight: 63.5036 kg

DRUGS (1)
  1. ARIXTRA [Suspect]
     Indication: PULMONARY EMBOLISM
     Dates: start: 20120217, end: 20120307

REACTIONS (3)
  - MULTI-ORGAN DISORDER [None]
  - COMPLETED SUICIDE [None]
  - ARTERIAL OCCLUSIVE DISEASE [None]
